FAERS Safety Report 11675068 (Version 1)
Quarter: 2015Q4

REPORT INFORMATION
  Report Type: Spontaneous
  Country: US (occurrence: US)
  Receive Date: 20151027
  Receipt Date: 20151027
  Transmission Date: 20160304
  Serious: No
  Sender: FDA-Public Use
  Company Number: US-ELI_LILLY_AND_COMPANY-US201007000911

PATIENT
  Sex: Female

DRUGS (1)
  1. FORTEO [Suspect]
     Active Substance: TERIPARATIDE
     Indication: OSTEOPOROSIS
     Dosage: 20 UG, DAILY (1/D)

REACTIONS (16)
  - Middle insomnia [Unknown]
  - General physical health deterioration [Unknown]
  - Fall [Unknown]
  - Joint injury [Unknown]
  - Asthenia [Unknown]
  - Sleep disorder [Unknown]
  - Face injury [Unknown]
  - Gait disturbance [Unknown]
  - Synovial fluid crystal [Unknown]
  - Poor quality sleep [Unknown]
  - Back injury [Unknown]
  - Pain [Unknown]
  - Posture abnormal [Unknown]
  - Fatigue [Unknown]
  - Limb injury [Unknown]
  - Musculoskeletal discomfort [Unknown]
